FAERS Safety Report 15547701 (Version 1)
Quarter: 2018Q4

REPORT INFORMATION
  Report Type: Spontaneous
  Country: US (occurrence: US)
  Receive Date: 20181024
  Receipt Date: 20181024
  Transmission Date: 20190205
  Serious: Yes (Life-Threatening, Hospitalization)
  Sender: FDA-Public Use
  Company Number: None

PATIENT
  Age: 51 Year
  Sex: Female
  Weight: 64.5 kg

DRUGS (2)
  1. NS 250 ML [Concomitant]
     Dates: start: 20181002, end: 20181002
  2. VENOFER [Suspect]
     Active Substance: IRON SUCROSE
     Indication: IRON DEFICIENCY
     Dosage: ?          OTHER FREQUENCY:ONCE;?
     Route: 040
     Dates: start: 20181002, end: 20181002

REACTIONS (9)
  - Hypotension [None]
  - Urticaria [None]
  - Pallor [None]
  - Throat clearing [None]
  - Nausea [None]
  - Chest pain [None]
  - Throat tightness [None]
  - Oedema peripheral [None]
  - Abdominal pain [None]

NARRATIVE: CASE EVENT DATE: 20181002
